FAERS Safety Report 7457172-4 (Version None)
Quarter: 2011Q1

REPORT INFORMATION
  Report Type: 
  Country: None (occurrence: None)
  Receive Date: 20110302
  Receipt Date: 20101213
  Transmission Date: 20110831
  Serious: No
  Sender: FDA-Public Use
  Company Number: 023749

PATIENT
  Sex: Female
  Weight: 91 kg

DRUGS (3)
  1. CIMZIA [Suspect]
     Indication: CROHN'S DISEASE
     Dosage: (TWO SHOTS SUBCUTANEOUS)
     Route: 058
     Dates: start: 20101209
  2. PENTASA [Concomitant]
  3. PROTONIX [Concomitant]

REACTIONS (6)
  - FEELING COLD [None]
  - NERVOUSNESS [None]
  - HEADACHE [None]
  - BLOOD PRESSURE INCREASED [None]
  - CHILLS [None]
  - FEELING JITTERY [None]
